FAERS Safety Report 14324485 (Version 1)
Quarter: 2017Q4

REPORT INFORMATION
  Report Type: Spontaneous
  Country: US (occurrence: US)
  Receive Date: 20171226
  Receipt Date: 20171226
  Transmission Date: 20180321
  Serious: Yes (Hospitalization, Other)
  Sender: FDA-Public Use
  Company Number: US-AUROBINDO-AUR-APL-2017-45626

PATIENT
  Age: 21 Year
  Sex: Male

DRUGS (2)
  1. DIPHENHYDRAMINE. [Suspect]
     Active Substance: DIPHENHYDRAMINE
     Indication: PRODUCT USED FOR UNKNOWN INDICATION
     Dosage: 50 MG, UNK
     Route: 042
  2. DIPHENHYDRAMINE. [Suspect]
     Active Substance: DIPHENHYDRAMINE
     Dosage: 50 MG, FOUR TIMES/DAY
     Route: 048

REACTIONS (17)
  - Dysarthria [Unknown]
  - Postural tremor [Unknown]
  - Salivary hypersecretion [Unknown]
  - Drug abuse [Unknown]
  - Muscle rigidity [Unknown]
  - Overdose [Unknown]
  - Toxicity to various agents [Unknown]
  - Hyporesponsive to stimuli [Unknown]
  - Staring [Unknown]
  - Withdrawal syndrome [Unknown]
  - Cold sweat [Unknown]
  - Sinus tachycardia [Unknown]
  - Reduced facial expression [Unknown]
  - Hyperhidrosis [Unknown]
  - Dysphonia [Unknown]
  - Mental status changes [Unknown]
  - Tremor [Unknown]
